FAERS Safety Report 11564106 (Version 2)
Quarter: 2015Q4

REPORT INFORMATION
  Report Type: Spontaneous
  Country: US (occurrence: US)
  Receive Date: 20150928
  Receipt Date: 20151019
  Transmission Date: 20160304
  Serious: No
  Sender: FDA-Public Use
  Company Number: US-ASTRAZENECA-2015SE89676

PATIENT
  Age: 21525 Day
  Sex: Female
  Weight: 61.2 kg

DRUGS (1)
  1. METOPROLOL SUCCINATE. [Suspect]
     Active Substance: METOPROLOL SUCCINATE
     Indication: BLOOD PRESSURE ABNORMAL
     Route: 048

REACTIONS (4)
  - Bradycardia [Unknown]
  - Palpitations [Unknown]
  - Circumstance or information capable of leading to medication error [Unknown]
  - Vertigo [Unknown]

NARRATIVE: CASE EVENT DATE: 20150915
